FAERS Safety Report 17560122 (Version 1)
Quarter: 2020Q1

REPORT INFORMATION
  Report Type: Spontaneous
  Country: US (occurrence: US)
  Receive Date: 20200311
  Receipt Date: 20200311
  Transmission Date: 20200409
  Serious: Yes (Hospitalization, Other)
  Sender: FDA-Public Use
  Company Number: None

PATIENT
  Sex: Male

DRUGS (2)
  1. VIGABATRIN POWDER [Suspect]
     Active Substance: VIGABATRIN
     Indication: MUSCLE SPASMS
     Dosage: ?          OTHER FREQUENCY:AM/PM ;?
     Route: 048
     Dates: start: 20180615
  2. VIGABATRIN POWDER [Suspect]
     Active Substance: VIGABATRIN
     Indication: EPILEPSY
     Dosage: ?          OTHER FREQUENCY:AM/PM ;?
     Route: 048
     Dates: start: 20180615

REACTIONS (2)
  - Epilepsy [None]
  - Muscle spasms [None]
